FAERS Safety Report 9364755 (Version 1)
Quarter: 2013Q2

REPORT INFORMATION
  Report Type: Spontaneous
  Country: US (occurrence: US)
  Receive Date: 20130624
  Receipt Date: 20130624
  Transmission Date: 20140414
  Serious: No
  Sender: FDA-Public Use
  Company Number: US-ASTRAZENECA-2013SE42824

PATIENT
  Age: 22293 Day
  Sex: Female
  Weight: 45.4 kg

DRUGS (4)
  1. PULMICORT FLEXHALER [Suspect]
     Indication: ASTHMA
     Route: 055
     Dates: start: 20130509
  2. ALBUTEROL [Concomitant]
     Indication: ASTHMA
  3. BROMIDE [Concomitant]
     Indication: ASTHMA
  4. BROMIDE [Concomitant]
     Indication: PNEUMONIA

REACTIONS (1)
  - Alopecia [Unknown]
